FAERS Safety Report 7913330-3 (Version None)
Quarter: 2011Q4

REPORT INFORMATION
  Report Type: 
  Country: None (occurrence: None)
  Receive Date: 20111114
  Receipt Date: 20111107
  Transmission Date: 20120403
  Serious: Yes (Other)
  Sender: FDA-Public Use
  Company Number: AU-AMGEN-AUSSP2011026128

PATIENT
  Age: 35 Year
  Sex: Male
  Weight: 100 kg

DRUGS (4)
  1. NEUPOGEN [Suspect]
     Dosage: 2700 MUG, QD
     Dates: start: 20101028, end: 20101031
  2. NEUPOGEN [Suspect]
     Indication: UNRELATED DONOR BONE MARROW TRANSPLANTATION THERAPY
     Dosage: 960 MUG/KG, QD
     Route: 058
     Dates: start: 20101028, end: 20101031
  3. FOLIC ACID [Concomitant]
  4. VITAMIN B COMPLEX CAP [Concomitant]

REACTIONS (10)
  - AGITATION [None]
  - FATIGUE [None]
  - SKIN DISCOLOURATION [None]
  - ANGIOEDEMA [None]
  - HYPERHIDROSIS [None]
  - URTICARIA CHRONIC [None]
  - BONE PAIN [None]
  - RASH [None]
  - SKIN EXFOLIATION [None]
  - INSOMNIA [None]
